FAERS Safety Report 12687157 (Version 2)
Quarter: 2016Q3

REPORT INFORMATION
  Report Type: Spontaneous
  Country: US (occurrence: US)
  Receive Date: 20160825
  Receipt Date: 20160831
  Transmission Date: 20161109
  Serious: Yes (Hospitalization, Other)
  Sender: FDA-Public Use
  Company Number: US-VIIV HEALTHCARE LIMITED-US2015139216

PATIENT
  Age: 59 Year
  Sex: Male

DRUGS (5)
  1. ANORO ELLIPTA [Suspect]
     Active Substance: UMECLIDINIUM BROMIDE\VILANTEROL TRIFENATATE
     Indication: CHRONIC OBSTRUCTIVE PULMONARY DISEASE
     Dosage: 1 PUFF(S), 1D
     Dates: start: 20150923
  2. SPIRIVA [Concomitant]
     Active Substance: TIOTROPIUM BROMIDE MONOHYDRATE
  3. ANORO ELLIPTA [Suspect]
     Active Substance: UMECLIDINIUM BROMIDE\VILANTEROL TRIFENATATE
     Indication: BRONCHITIS
  4. TIVICAY [Suspect]
     Active Substance: DOLUTEGRAVIR SODIUM
     Indication: HIV INFECTION
     Dosage: 50 MG, UNK
  5. FLONASE [Concomitant]
     Active Substance: FLUTICASONE PROPIONATE

REACTIONS (7)
  - Pneumonia [Unknown]
  - Nausea [Recovering/Resolving]
  - Blood carbon monoxide increased [Unknown]
  - Dizziness [Not Recovered/Not Resolved]
  - Blood pressure increased [Unknown]
  - Concomitant disease progression [Unknown]
  - Hallucination [Unknown]

NARRATIVE: CASE EVENT DATE: 20150923
